FAERS Safety Report 14171071 (Version 2)
Quarter: 2018Q1

REPORT INFORMATION
  Report Type: Spontaneous
  Country: JP (occurrence: JP)
  Receive Date: 20171108
  Receipt Date: 20180308
  Transmission Date: 20180508
  Serious: Yes (Hospitalization)
  Sender: FDA-Public Use
  Company Number: JP-MYLANLABS-2017M1069133

PATIENT
  Age: 60 Year
  Sex: Female
  Weight: 53 kg

DRUGS (12)
  1. EPIRUBICIN HYDROCHLORIDE INJ. 10MG ^NK^ [Suspect]
     Active Substance: EPIRUBICIN HYDROCHLORIDE
     Dosage: 160 MG, CYCLE
     Route: 042
     Dates: start: 20171106
  2. EPIRUBICIN HYDROCHLORIDE INJ. 10MG ^NK^ [Suspect]
     Active Substance: EPIRUBICIN HYDROCHLORIDE
     Dosage: 160 MG, CYCLE
     Route: 042
     Dates: start: 20171127
  3. ENDOXAN                            /00021101/ [Suspect]
     Active Substance: CYCLOPHOSPHAMIDE
     Indication: BREAST CANCER
     Dosage: 800 MG, CYCLE
     Route: 065
     Dates: start: 20171016
  4. FLUOROURACIL. [Suspect]
     Active Substance: FLUOROURACIL
     Dosage: 800 MG, CYCLE
     Route: 065
     Dates: start: 20171106
  5. ENDOXAN                            /00021101/ [Suspect]
     Active Substance: CYCLOPHOSPHAMIDE
     Dosage: 800 MG, CYCLE
     Route: 065
     Dates: start: 20171106
  6. ENDOXAN                            /00021101/ [Suspect]
     Active Substance: CYCLOPHOSPHAMIDE
     Dosage: 800 MG, CYCLE
     Route: 065
     Dates: start: 20171127
  7. ENDOXAN                            /00021101/ [Suspect]
     Active Substance: CYCLOPHOSPHAMIDE
     Dosage: 800 MG, CYCLE
     Route: 065
     Dates: start: 20171218
  8. FLUOROURACIL. [Suspect]
     Active Substance: FLUOROURACIL
     Dosage: 800 MG, CYCLE
     Route: 065
     Dates: start: 20171127
  9. EPIRUBICIN HYDROCHLORIDE INJ. 10MG ^NK^ [Suspect]
     Active Substance: EPIRUBICIN HYDROCHLORIDE
     Dosage: 160 MG, CYCLE
     Route: 042
     Dates: start: 20171218
  10. FLUOROURACIL. [Suspect]
     Active Substance: FLUOROURACIL
     Dosage: 800 MG, CYCLE
     Route: 065
     Dates: start: 20171218
  11. EPIRUBICIN HYDROCHLORIDE INJ. 10MG ^NK^ [Suspect]
     Active Substance: EPIRUBICIN HYDROCHLORIDE
     Indication: BREAST CANCER
     Dosage: 160 MG, CYCLE
     Route: 042
     Dates: start: 20171016
  12. FLUOROURACIL. [Suspect]
     Active Substance: FLUOROURACIL
     Indication: BREAST CANCER
     Dosage: 800 MG, CYCLE
     Route: 065
     Dates: start: 20171016

REACTIONS (4)
  - Malaise [Recovered/Resolved]
  - Nausea [Unknown]
  - Vomiting [Recovered/Resolved]
  - Diarrhoea [Recovered/Resolved]

NARRATIVE: CASE EVENT DATE: 20171020
